FAERS Safety Report 19270093 (Version 1)
Quarter: 2021Q2

REPORT INFORMATION
  Report Type: Spontaneous
  Country: US (occurrence: US)
  Receive Date: 20210518
  Receipt Date: 20210518
  Transmission Date: 20210717
  Serious: Yes (Hospitalization, Other)
  Sender: FDA-Public Use
  Company Number: None

PATIENT
  Sex: Female

DRUGS (13)
  1. MONTELUKAST [Concomitant]
     Active Substance: MONTELUKAST SODIUM
     Dates: start: 20210125
  2. GABAPENTIN. [Concomitant]
     Active Substance: GABAPENTIN
     Dates: start: 20210208
  3. PRAVASTATIN. [Concomitant]
     Active Substance: PRAVASTATIN
     Dates: start: 20210309
  4. BENZONATATE. [Concomitant]
     Active Substance: BENZONATATE
     Dates: start: 20210415
  5. DULOXETINE. [Concomitant]
     Active Substance: DULOXETINE
     Dates: start: 20210504
  6. EMGALITY [Concomitant]
     Active Substance: GALCANEZUMAB-GNLM
     Dates: start: 20210504
  7. FENTANYL. [Concomitant]
     Active Substance: FENTANYL
     Dates: start: 20210513
  8. ONDANSETRON [Concomitant]
     Active Substance: ONDANSETRON
     Dates: start: 20210504
  9. LOSARTAN/HCT [Concomitant]
     Active Substance: HYDROCHLOROTHIAZIDE\LOSARTAN POTASSIUM
     Dates: start: 20210109
  10. CYANOCOBALAM INJ [Concomitant]
     Dates: start: 20210208
  11. NUCALA [Suspect]
     Active Substance: MEPOLIZUMAB
     Indication: ASTHMA
     Dosage: ?          OTHER FREQUENCY:EVERY 4 WEEKS;?
     Route: 058
     Dates: start: 20210420
  12. METFORMIN [Concomitant]
     Active Substance: METFORMIN HYDROCHLORIDE
     Dates: start: 20210208
  13. VITAMIN D [Concomitant]
     Active Substance: VITAMIN D NOS
     Dates: start: 20210421

REACTIONS (3)
  - Localised infection [None]
  - Quality of life decreased [None]
  - Asthma [None]
